FAERS Safety Report 20405678 (Version 4)
Quarter: 2022Q1

REPORT INFORMATION
  Report Type: Spontaneous
  Country: JP (occurrence: JP)
  Receive Date: 20220131
  Receipt Date: 20220331
  Transmission Date: 20220423
  Serious: Yes (Death, Other)
  Sender: FDA-Public Use
  Company Number: JP-NBI-J202201683BIPI

PATIENT
  Age: 77 Year
  Sex: Male

DRUGS (1)
  1. DABIGATRAN ETEXILATE MESYLATE [Suspect]
     Active Substance: DABIGATRAN ETEXILATE MESYLATE
     Indication: Atrial fibrillation
     Route: 048
     Dates: start: 20210921

REACTIONS (7)
  - Fall [Fatal]
  - Atrioventricular block [Fatal]
  - Quadriplegia [Unknown]
  - Cervical vertebral fracture [Unknown]
  - Spinal cord injury cervical [Unknown]
  - Bradycardia [Unknown]
  - Contusion [Unknown]

NARRATIVE: CASE EVENT DATE: 20211206
